FAERS Safety Report 17816209 (Version 1)
Quarter: 2020Q2

REPORT INFORMATION
  Report Type: Spontaneous
  Country: US (occurrence: US)
  Receive Date: 20200522
  Receipt Date: 20200522
  Transmission Date: 20200714
  Serious: Yes (Hospitalization)
  Sender: FDA-Public Use
  Company Number: None

PATIENT
  Age: 57 Year
  Sex: Male
  Weight: 71 kg

DRUGS (2)
  1. EXTAVIA [Suspect]
     Active Substance: INTERFERON BETA-1B
     Indication: COVID-19
     Dosage: OTHER FREQUENCY:ONE DOSE ONLY.;?
     Route: 058
     Dates: start: 20200521, end: 20200521
  2. EXTAVIA [Concomitant]
     Active Substance: INTERFERON BETA-1B
     Dates: start: 20200521, end: 20200521

REACTIONS (4)
  - Dyspnoea [None]
  - Hyperhidrosis [None]
  - Cough [None]
  - Drug hypersensitivity [None]

NARRATIVE: CASE EVENT DATE: 20200521
